FAERS Safety Report 12135805 (Version 2)
Quarter: 2020Q4

REPORT INFORMATION
  Report Type: Report from Study
  Country: US (occurrence: US)
  Receive Date: 20160302
  Receipt Date: 20201123
  Transmission Date: 20210113
  Serious: Yes (Hospitalization, Other)
  Sender: FDA-Public Use
  Company Number: US-ROCHE-1712890

PATIENT
  Age: 51 Year
  Sex: Female
  Weight: 114 kg

DRUGS (9)
  1. DOCETAXEL. [Suspect]
     Active Substance: DOCETAXEL
     Indication: INVASIVE BREAST CARCINOMA
     Dosage: OVER 60 MIN ON DAY
     Route: 042
     Dates: start: 20151029
  2. DOCETAXEL. [Suspect]
     Active Substance: DOCETAXEL
     Dosage: OVER 60 MIN ON DAY
     Route: 042
  3. PERTUZUMAB. [Suspect]
     Active Substance: PERTUZUMAB
     Indication: INVASIVE BREAST CARCINOMA
     Dosage: OVER 60 MIN ON DAY 1?CYCLE 1
     Route: 042
     Dates: start: 20151029
  4. CARBOPLATIN. [Suspect]
     Active Substance: CARBOPLATIN
     Indication: INVASIVE BREAST CARCINOMA
     Dosage: AUC=6 MG/ML/MIN OVER 30-60 MIN ON DAY 1?CYCLE 1
     Route: 042
     Dates: start: 20151029
  5. PERTUZUMAB. [Suspect]
     Active Substance: PERTUZUMAB
     Dosage: OVER 30-60 MIN ON DAY 1?CYCLE 2-6
     Route: 042
  6. TRASTUZUMAB. [Suspect]
     Active Substance: TRASTUZUMAB
     Indication: INVASIVE BREAST CARCINOMA
     Dosage: OVER 90 MIN ON DAY 1?CYCLE 1
     Route: 042
     Dates: start: 20151029
  7. CARBOPLATIN. [Suspect]
     Active Substance: CARBOPLATIN
     Dosage: AUC=6 MG/ML/MIN OVER 30-60 MIN ON DAY 1?CYCLE 2-6
     Route: 042
  8. HCTZ [Suspect]
     Active Substance: HYDROCHLOROTHIAZIDE
     Indication: INVASIVE BREAST CARCINOMA
     Route: 065
  9. TRASTUZUMAB. [Suspect]
     Active Substance: TRASTUZUMAB
     Dosage: OVER 30-60 MIN ON DAY 1 Q3WEEKS (IT IS RECOMMENDED THAT ADJUVANT TRASTUZUMAB BE?CONTINUED FOR A TOTA
     Route: 042

REACTIONS (4)
  - Urinary tract infection [Recovering/Resolving]
  - Dehydration [Recovered/Resolved]
  - Stomatitis [Recovering/Resolving]
  - Hyponatraemia [Recovered/Resolved]

NARRATIVE: CASE EVENT DATE: 20151103
